FAERS Safety Report 4971212-3 (Version None)
Quarter: 2006Q1

REPORT INFORMATION
  Report Type: 
  Country: None (occurrence: None)
  Receive Date: 20060216
  Receipt Date: 20020619
  Transmission Date: 20060701
  Serious: Yes (Hospitalization)
  Sender: FDA-Public Use
  Company Number: 2002IM000372

PATIENT
  Age: 61 Year
  Sex: Female
  Weight: 53.0709 kg

DRUGS (12)
  1. INTERFERON GAMMA-1B [Suspect]
     Indication: OVARIAN CANCER
     Dosage: 100 UG, TIW, SUBCUTANEOUS
     Route: 058
     Dates: start: 20020418, end: 20020422
  2. CARBOPLATIN [Suspect]
     Indication: OVARIAN CANCER
     Dosage: 590 MG, Q3W, INTRAVENOUS
     Route: 042
     Dates: start: 20020418, end: 20020418
  3. PACLITAXEL [Suspect]
     Indication: OVARIAN CANCER
     Dosage: 175 MG/M2, Q3W, INTRAVENOUS
     Route: 042
     Dates: start: 20020418, end: 20020418
  4. VENLAFAXINE HCL [Concomitant]
  5. PREMARIN [Concomitant]
  6. LANSOPRAZOLE [Concomitant]
  7. ACETAMINOPHEN [Concomitant]
  8. LOVENOX [Concomitant]
  9. COUMADIN [Concomitant]
  10. RISPERDAL [Concomitant]
  11. IMODIUM [Concomitant]
  12. HYDROCODONE BITARTRATE + ACETAMINOPHEN [Concomitant]

REACTIONS (1)
  - PYREXIA [None]
